FAERS Safety Report 5699094-5 (Version None)
Quarter: 2008Q2

REPORT INFORMATION
  Report Type: 
  Country: None (occurrence: None)
  Receive Date: 20080401
  Receipt Date: 20071211
  Transmission Date: 20081010
  Serious: Yes (Other)
  Sender: FDA-Public Use
  Company Number: 165277USA

PATIENT
  Age: 70 Year
  Sex: Male

DRUGS (4)
  1. BENAZEPRIL HYDROCHLORIDE [Suspect]
     Indication: HYPERTENSION
     Dosage: 20 MG (20 MG,1 IN 1 D),ORAL
     Route: 048
     Dates: start: 20000101
  2. HYDROCHLOROTHIAZIDE [Concomitant]
  3. INEGY [Concomitant]
  4. GEMFIBROZIL [Concomitant]

REACTIONS (1)
  - LIP SWELLING [None]
